FAERS Safety Report 6956602-1 (Version None)
Quarter: 2010Q3

REPORT INFORMATION
  Report Type: 
  Country: None (occurrence: None)
  Receive Date: 20100830
  Receipt Date: 20100817
  Transmission Date: 20110219
  Serious: Yes (Hospitalization)
  Sender: FDA-Public Use
  Company Number: US-ELI_LILLY_AND_COMPANY-US201008006722

PATIENT
  Sex: Female

DRUGS (14)
  1. FORTEO [Suspect]
     Dosage: 20 UG, DAILY (1/D)
     Dates: start: 20100602
  2. ATENOLOL [Concomitant]
  3. ASACOL [Concomitant]
  4. METHOTREXATE [Concomitant]
  5. FOLIC ACID [Concomitant]
  6. NEXIUM [Concomitant]
  7. PERCOCET [Concomitant]
  8. ENTOCORT EC [Concomitant]
  9. VITAMIN D [Concomitant]
  10. CALCIUM [Concomitant]
  11. PREDNISONE [Concomitant]
  12. LOMOTIL [Concomitant]
  13. KLOR-CON [Concomitant]
  14. VITAMIN B12 NOS [Concomitant]

REACTIONS (3)
  - MALAISE [None]
  - PULMONARY EMBOLISM [None]
  - RESPIRATORY RATE INCREASED [None]
